FAERS Safety Report 15536646 (Version 1)
Quarter: 2018Q4

REPORT INFORMATION
  Report Type: Spontaneous
  Country: US (occurrence: US)
  Receive Date: 20181015
  Receipt Date: 20181015
  Transmission Date: 20190205
  Serious: No
  Sender: FDA-Public Use
  Company Number: None

PATIENT
  Age: 58 Year
  Sex: Male
  Weight: 111.13 kg

DRUGS (3)
  1. MELOXICAM-UNKNOWN [Suspect]
     Active Substance: MELOXICAM
     Indication: SPINAL OSTEOARTHRITIS
  2. MELOXICAM-UNKNOWN [Suspect]
     Active Substance: MELOXICAM
     Indication: RHEUMATOID ARTHRITIS
  3. MELOXICAM-UNKNOWN [Suspect]
     Active Substance: MELOXICAM
     Indication: PSORIATIC ARTHROPATHY

REACTIONS (1)
  - Hypersensitivity [None]
